FAERS Safety Report 5752691-0 (Version None)
Quarter: 2008Q2

REPORT INFORMATION
  Report Type: 
  Country: None (occurrence: None)
  Receive Date: 20080527
  Receipt Date: 20080527
  Transmission Date: 20081010
  Serious: Yes (Hospitalization)
  Sender: FDA-Public Use
  Company Number: None

PATIENT
  Age: 40 Year
  Sex: Female
  Weight: 68.0396 kg

DRUGS (4)
  1. AVELOX [Suspect]
     Indication: GINGIVITIS
     Dosage: 1 TABLET DAILY PO
     Route: 048
     Dates: start: 20071228, end: 20080110
  2. AVELOX [Suspect]
     Indication: LYMPHADENOPATHY
     Dosage: 1 TABLET DAILY PO
     Route: 048
     Dates: start: 20071228, end: 20080110
  3. AVELOX [Suspect]
     Indication: GINGIVITIS
     Dosage: 1 TABLET DAILY PO
     Route: 048
     Dates: start: 20080509, end: 20080512
  4. AVELOX [Suspect]
     Indication: LYMPHADENOPATHY
     Dosage: 1 TABLET DAILY PO
     Route: 048
     Dates: start: 20080509, end: 20080512

REACTIONS (6)
  - BLOOD PRESSURE DIASTOLIC INCREASED [None]
  - CHEST PAIN [None]
  - CHILLS [None]
  - HOT FLUSH [None]
  - PALPITATIONS [None]
  - PARAESTHESIA [None]
